FAERS Safety Report 13205745 (Version 2)
Quarter: 2017Q1

REPORT INFORMATION
  Report Type: Spontaneous
  Country: DE (occurrence: DE)
  Receive Date: 20170209
  Receipt Date: 20170227
  Transmission Date: 20170428
  Serious: Yes (Death, Other)
  Sender: FDA-Public Use
  Company Number: DE-JNJFOC-20170208315

PATIENT
  Sex: Female

DRUGS (7)
  1. ADRIAMYCIN [Suspect]
     Active Substance: DOXORUBICIN HYDROCHLORIDE
     Indication: PRIMARY MEDIASTINAL LARGE B-CELL LYMPHOMA
     Dosage: DAYS 4?5
     Route: 065
  2. VINCRISTINE [Suspect]
     Active Substance: VINCRISTINE
     Indication: PRIMARY MEDIASTINAL LARGE B-CELL LYMPHOMA
     Dosage: DAY 1
     Route: 042
  3. IFOSFAMIDE. [Suspect]
     Active Substance: IFOSFAMIDE
     Indication: PRIMARY MEDIASTINAL LARGE B-CELL LYMPHOMA
     Dosage: DAYS 1?5
     Route: 065
  4. ADRIAMYCIN [Suspect]
     Active Substance: DOXORUBICIN HYDROCHLORIDE
     Indication: PRIMARY MEDIASTINAL LARGE B-CELL LYMPHOMA
     Dosage: DAYS 4?5
     Route: 065
  5. DEXAMETHASONE. [Suspect]
     Active Substance: DEXAMETHASONE
     Indication: PRIMARY MEDIASTINAL LARGE B-CELL LYMPHOMA
     Dosage: DAYS 1?5
     Route: 048
  6. METHOTREXATE. [Suspect]
     Active Substance: METHOTREXATE
     Indication: PRIMARY MEDIASTINAL LARGE B-CELL LYMPHOMA
     Dosage: DAY 1, FOR 24 H;
     Route: 065
  7. CYCLOPHOSPHAMIDE. [Suspect]
     Active Substance: CYCLOPHOSPHAMIDE
     Indication: PRIMARY MEDIASTINAL LARGE B-CELL LYMPHOMA
     Dosage: DAYS 1?5
     Route: 065

REACTIONS (3)
  - Myocardial infarction [Fatal]
  - Product use issue [Unknown]
  - Off label use [Unknown]
